FAERS Safety Report 8747655 (Version 7)
Quarter: 2013Q2

REPORT INFORMATION
  Report Type: Spontaneous
  Country: US (occurrence: US)
  Receive Date: 20120827
  Receipt Date: 20130624
  Transmission Date: 20140414
  Serious: Yes (Hospitalization, Disabling, Other)
  Sender: FDA-Public Use
  Company Number: US-009507513-1208USA007483

PATIENT
  Sex: Female

DRUGS (9)
  1. FOSAMAX [Suspect]
     Indication: OSTEOPENIA
     Dosage: 10 MG, UNK
     Route: 048
     Dates: start: 200008, end: 200201
  2. FOSAMAX [Suspect]
     Dosage: 70 MG, QW
     Route: 048
     Dates: start: 200202, end: 200911
  3. FOSAMAX [Suspect]
     Route: 048
  4. ALENDRONATE SODIUM [Suspect]
     Indication: OSTEOPENIA
     Dosage: 70 MG, UNK
     Route: 048
     Dates: start: 200802, end: 200909
  5. CORTICOSTEROIDS (UNSPECIFIED) [Concomitant]
     Dosage: UNK, PRN
     Dates: start: 1992
  6. ADVAIR [Concomitant]
     Indication: CHRONIC OBSTRUCTIVE PULMONARY DISEASE
     Dosage: 1 DF, BID
     Dates: start: 200201, end: 200912
  7. SPIRIVA [Concomitant]
     Indication: CHRONIC OBSTRUCTIVE PULMONARY DISEASE
     Dosage: 1 DF, QD
     Dates: start: 2007
  8. PREDNISONE [Concomitant]
     Dosage: UNK
     Dates: start: 1997
  9. PREDNISONE [Concomitant]
     Dosage: 5 MG, QD
     Dates: start: 2003

REACTIONS (108)
  - Abscess jaw [Unknown]
  - Bone graft [Unknown]
  - Pancreatitis [Unknown]
  - Elbow operation [Unknown]
  - Shoulder arthroplasty [Unknown]
  - Bone graft [Unknown]
  - Bone graft [Recovering/Resolving]
  - Bone graft [Unknown]
  - Soft tissue flap operation [Unknown]
  - Radical neck dissection [Unknown]
  - Orthopaedic procedure [Unknown]
  - Respiratory failure [Recovered/Resolved]
  - Osteomyelitis [Not Recovered/Not Resolved]
  - Osteonecrosis of jaw [Not Recovered/Not Resolved]
  - Osteonecrosis of jaw [Unknown]
  - Osteonecrosis of jaw [Unknown]
  - Osteonecrosis of jaw [Unknown]
  - Osteonecrosis of jaw [Not Recovered/Not Resolved]
  - Gingival disorder [Unknown]
  - Adverse event [Unknown]
  - Type 2 diabetes mellitus [Unknown]
  - Exposed bone in jaw [Unknown]
  - Dental caries [Unknown]
  - Impaired healing [Unknown]
  - Gingival infection [Unknown]
  - Periodontal disease [Unknown]
  - Gingival bleeding [Unknown]
  - Fistula discharge [Unknown]
  - Tooth loss [Unknown]
  - Dental caries [Unknown]
  - Dental caries [Unknown]
  - Tooth extraction [Unknown]
  - Artificial crown procedure [Unknown]
  - Artificial crown procedure [Unknown]
  - Artificial crown procedure [Unknown]
  - Dental prosthesis placement [Unknown]
  - Endodontic procedure [Unknown]
  - Endodontic procedure [Unknown]
  - Sleep disorder [Unknown]
  - Dental caries [Unknown]
  - Dental caries [Unknown]
  - Sleep apnoea syndrome [Unknown]
  - Orthopaedic procedure [Unknown]
  - Osteoradionecrosis [Unknown]
  - Diabetes mellitus inadequate control [Unknown]
  - Dental caries [Unknown]
  - Tooth fracture [Unknown]
  - Gingival disorder [Unknown]
  - Gingival bleeding [Unknown]
  - Scar [Unknown]
  - Asthma [Unknown]
  - Ulnar nerve injury [Unknown]
  - Breast disorder [Unknown]
  - Chronic obstructive pulmonary disease [Recovered/Resolved]
  - Tooth fracture [Unknown]
  - Dental prosthesis placement [Unknown]
  - Sensitivity of teeth [Unknown]
  - Dental caries [Unknown]
  - Osteoarthritis [Unknown]
  - Chronic obstructive pulmonary disease [Unknown]
  - Stress [Unknown]
  - Device failure [Unknown]
  - Dental implantation [Not Recovered/Not Resolved]
  - Dental prosthesis placement [Unknown]
  - Staphylococcal infection [Unknown]
  - Tooth fracture [Unknown]
  - Tooth extraction [Unknown]
  - Bacterial infection [Unknown]
  - Inflammation [Unknown]
  - Trismus [Unknown]
  - Upper respiratory tract infection [Unknown]
  - Ear pain [Unknown]
  - Dysphonia [Unknown]
  - Adverse drug reaction [Unknown]
  - Pain [Unknown]
  - Fatigue [Not Recovered/Not Resolved]
  - Decreased appetite [Unknown]
  - Bone disorder [Unknown]
  - Debridement [Unknown]
  - Fistula [Unknown]
  - Jaw operation [Unknown]
  - Bone disorder [Unknown]
  - Dental caries [Unknown]
  - Tooth extraction [Unknown]
  - Exposed bone in jaw [Unknown]
  - Tooth extraction [Unknown]
  - Suture removal [Unknown]
  - Dental implantation [Unknown]
  - Suture removal [Unknown]
  - Medical device removal [Unknown]
  - Suture removal [Unknown]
  - Dental caries [Unknown]
  - Discomfort [Unknown]
  - Hypoaesthesia [Unknown]
  - Transplant failure [Unknown]
  - Dental implantation [Unknown]
  - Suture removal [Unknown]
  - Medical device removal [Unknown]
  - Suture removal [Unknown]
  - Jaw operation [Unknown]
  - Mandibular prosthesis user [Unknown]
  - Ear pain [Unknown]
  - Nerve injury [Unknown]
  - Neurorrhaphy [Unknown]
  - Pain in extremity [Unknown]
  - Dyspepsia [Unknown]
  - Pain in jaw [Unknown]
  - Face oedema [Unknown]
